FAERS Safety Report 13389624 (Version 2)
Quarter: 2017Q2

REPORT INFORMATION
  Report Type: Spontaneous
  Country: FR (occurrence: FR)
  Receive Date: 20170330
  Receipt Date: 20170406
  Transmission Date: 20170830
  Serious: Yes (Hospitalization)
  Sender: FDA-Public Use
  Company Number: FR-JNJFOC-20170322607

PATIENT
  Age: 68 Year
  Sex: Male

DRUGS (5)
  1. DUROGESIC [Suspect]
     Active Substance: FENTANYL
     Indication: MUCOSAL PAIN
     Route: 062
     Dates: end: 20170227
  2. DUROGESIC [Suspect]
     Active Substance: FENTANYL
     Indication: MUCOSAL PAIN
     Route: 062
     Dates: start: 20170303
  3. MORPHINE [Suspect]
     Active Substance: MORPHINE
     Indication: PAIN
     Route: 058
     Dates: start: 20170227, end: 20170302
  4. MORPHINE [Suspect]
     Active Substance: MORPHINE
     Indication: PAIN
     Route: 058
     Dates: start: 20170203, end: 20170309
  5. DUROGESIC [Suspect]
     Active Substance: FENTANYL
     Indication: MUCOSAL PAIN
     Route: 062
     Dates: start: 20170227, end: 20170302

REACTIONS (1)
  - Hypercapnic coma [Recovered/Resolved]

NARRATIVE: CASE EVENT DATE: 20170302
